FAERS Safety Report 4989400-9 (Version None)
Quarter: 2006Q2

REPORT INFORMATION
  Report Type: 
  Country: None (occurrence: None)
  Receive Date: 20060426
  Receipt Date: 20060411
  Transmission Date: 20061013
  Serious: Yes (Hospitalization)
  Sender: FDA-Public Use
  Company Number: 2147

PATIENT
  Age: 44 Year
  Sex: Male
  Weight: 82.5547 kg

DRUGS (11)
  1. AVINZA [Suspect]
     Indication: PAIN
     Dosage: MG DAILY PO
     Route: 048
  2. AVINZA [Suspect]
     Indication: PAIN
     Dosage: 90 MG DAILY PO
     Route: 048
     Dates: end: 20050125
  3. ADDERALL CAPSULES [Suspect]
     Indication: ATTENTION DEFICIT/HYPERACTIVITY DISORDER
     Dosage: 30 MG DAILY PO
     Route: 048
     Dates: end: 20060125
  4. REBETOL [Suspect]
     Indication: HEPATITIS C
     Dosage: 1000 MG DAILY PO
     Route: 048
     Dates: start: 20050107, end: 20051215
  5. PEG-INTRON [Suspect]
     Indication: HEPATITIS C
     Dosage: 0.41 DAILY
     Dates: start: 20050107, end: 20051210
  6. AMPHETAMINE AND DEXTROAMPHETAMINE SALTS [Concomitant]
  7. ESCITALOPRAM OXALATE [Concomitant]
  8. LEVOTHYROXINE SODIUM [Concomitant]
  9. PEGINTERFERON [Concomitant]
  10. PREGABALIN [Concomitant]
  11. RIBAVIRIN [Concomitant]

REACTIONS (7)
  - DRUG INTERACTION [None]
  - HALLUCINATION, AUDITORY [None]
  - INSOMNIA [None]
  - PAIN [None]
  - PARANOIA [None]
  - PSYCHOTIC DISORDER [None]
  - SUICIDAL IDEATION [None]
